FAERS Safety Report 5247824-9 (Version None)
Quarter: 2007Q1

REPORT INFORMATION
  Report Type: 
  Country: None (occurrence: None)
  Receive Date: 20070227
  Receipt Date: 20070219
  Transmission Date: 20070707
  Serious: Yes (Hospitalization)
  Sender: FDA-Public Use
  Company Number: AR-ROCHE-483276

PATIENT
  Age: 26 Year
  Sex: Female

DRUGS (3)
  1. CELLCEPT [Suspect]
     Route: 048
     Dates: start: 20050615, end: 20051215
  2. CELLCEPT [Suspect]
     Route: 048
     Dates: start: 20051215, end: 20060115
  3. CELLCEPT [Suspect]
     Route: 048
     Dates: start: 20060115

REACTIONS (4)
  - ANGINA PECTORIS [None]
  - CONFUSIONAL STATE [None]
  - HALLUCINATION [None]
  - PANIC ATTACK [None]
